FAERS Safety Report 18363899 (Version 1)
Quarter: 2020Q4

REPORT INFORMATION
  Report Type: Spontaneous
  Country: AT (occurrence: AT)
  Receive Date: 20201009
  Receipt Date: 20201009
  Transmission Date: 20210114
  Serious: Yes (Death, Other)
  Sender: FDA-Public Use
  Company Number: AT-JNJFOC-20200950862

PATIENT
  Age: 18 Year
  Sex: Female

DRUGS (2)
  1. STELARA [Suspect]
     Active Substance: USTEKINUMAB
     Route: 058
     Dates: start: 202004
  2. STELARA [Suspect]
     Active Substance: USTEKINUMAB
     Indication: CROHN^S DISEASE
     Route: 058
     Dates: start: 201809, end: 2019

REACTIONS (5)
  - Intestinal operation [Fatal]
  - Peritonitis [Unknown]
  - Surgery [Unknown]
  - Crohn^s disease [Unknown]
  - Colectomy [Unknown]

NARRATIVE: CASE EVENT DATE: 2019
